FAERS Safety Report 9839902 (Version 2)
Quarter: 2014Q1

REPORT INFORMATION
  Report Type: Spontaneous
  Country: FR (occurrence: FR)
  Receive Date: 20140124
  Receipt Date: 20140320
  Transmission Date: 20141002
  Serious: Yes (Life-Threatening, Hospitalization, Other)
  Sender: FDA-Public Use
  Company Number: FR-ASTRAZENECA-2014SE04758

PATIENT
  Age: 23857 Day
  Sex: Female

DRUGS (4)
  1. XEROQUEL [Suspect]
     Route: 048
     Dates: end: 20140104
  2. EFFEXOR [Suspect]
     Route: 048
     Dates: end: 20140104
  3. TERALITHE [Suspect]
     Route: 048
     Dates: end: 20140104
  4. NORDAZEPAM [Suspect]
     Route: 048
     Dates: end: 20140104

REACTIONS (6)
  - Encephalopathy [Recovering/Resolving]
  - Coma [Recovering/Resolving]
  - Respiratory distress [Recovering/Resolving]
  - Pneumonia aspiration [Unknown]
  - Electrocardiogram QT prolonged [Unknown]
  - Vomiting [Unknown]
